FAERS Safety Report 8268214-0 (Version None)
Quarter: 2012Q2

REPORT INFORMATION
  Report Type: 
  Country: None (occurrence: None)
  Receive Date: 20120409
  Receipt Date: 20120403
  Transmission Date: 20120825
  Serious: Yes (Death)
  Sender: FDA-Public Use
  Company Number: KR-PFIZER INC-2012076601

PATIENT
  Age: 62 Year
  Sex: Male
  Weight: 62 kg

DRUGS (2)
  1. NONACOG ALFA [Suspect]
     Dosage: 2000 UNITS WEEKLY (36 X 62 KG = 2232 UNIT (APPROXIMATELY 2060 UNIT)
  2. NONACOG ALFA [Suspect]
     Indication: FACTOR IX DEFICIENCY
     Dosage: 1030; 2 UNITS WEEKLY
     Dates: start: 20120207, end: 20120207

REACTIONS (1)
  - CEREBRAL HAEMORRHAGE [None]
